FAERS Safety Report 8338076-1 (Version None)
Quarter: 2012Q2

REPORT INFORMATION
  Report Type: 
  Country: None (occurrence: None)
  Receive Date: 20120504
  Receipt Date: 20120424
  Transmission Date: 20120825
  Serious: Yes (Other)
  Sender: FDA-Public Use
  Company Number: CA-JNJFOC-20120412868

PATIENT
  Sex: Male
  Weight: 101.8 kg

DRUGS (6)
  1. TYLENOL W/ CODEINE NO. 3 [Concomitant]
     Dosage: AS NEEDED
     Route: 065
  2. GABAPENTIN [Concomitant]
     Route: 065
  3. REMICADE [Suspect]
     Indication: ANKYLOSING SPONDYLITIS
     Route: 042
     Dates: start: 20060619
  4. REMICADE [Suspect]
     Dosage: 49TH INFUSION
     Route: 042
     Dates: start: 20120424
  5. REMICADE [Suspect]
     Dosage: 48TH INFUSION
     Route: 042
     Dates: start: 20120313
  6. NAPROXEN [Concomitant]
     Route: 065

REACTIONS (7)
  - TREMOR [None]
  - HAEMATOCHEZIA [None]
  - HYPOAESTHESIA [None]
  - BACK PAIN [None]
  - NERVE COMPRESSION [None]
  - DISCOMFORT [None]
  - FURUNCLE [None]
